FAERS Safety Report 23639492 (Version 1)
Quarter: 2024Q1

REPORT INFORMATION
  Report Type: Spontaneous
  Country: US (occurrence: US)
  Receive Date: 20240316
  Receipt Date: 20240316
  Transmission Date: 20240409
  Serious: No
  Sender: FDA-Public Use
  Company Number: US-GSK-US2024029848

PATIENT
  Age: 37 Year
  Sex: Male

DRUGS (1)
  1. LAMICTAL XR [Suspect]
     Active Substance: LAMOTRIGINE
     Indication: Epilepsy
     Dosage: 1 DF, BID
     Dates: start: 2004

REACTIONS (1)
  - Product dose omission issue [Unknown]

NARRATIVE: CASE EVENT DATE: 20240228
